FAERS Safety Report 10069675 (Version 2)
Quarter: 2014Q2

REPORT INFORMATION
  Report Type: Report from Study
  Country: US (occurrence: US)
  Receive Date: 20140410
  Receipt Date: 20140421
  Transmission Date: 20141212
  Serious: Yes (Hospitalization)
  Sender: FDA-Public Use
  Company Number: US-BRISTOL-MYERS SQUIBB COMPANY-20580353

PATIENT
  Age: 57 Year
  Sex: Female

DRUGS (4)
  1. BELATACEPT [Suspect]
     Indication: IMMUNOSUPPRESSION
     Dosage: LAST DOSE 25-MAR-14
     Route: 042
     Dates: start: 20070426
  2. PREDNISONE [Suspect]
     Indication: IMMUNOSUPPRESSION
     Dates: start: 20070429
  3. MYCOPHENOLATE MOFETIL [Suspect]
     Indication: IMMUNOSUPPRESSION
     Dates: start: 20070426
  4. BASILIXIMAB [Suspect]
     Indication: IMMUNOSUPPRESSION
     Dates: start: 20070426

REACTIONS (2)
  - Acute myocardial infarction [Recovered/Resolved]
  - Femoral artery occlusion [Recovered/Resolved]
